FAERS Safety Report 7731411-4 (Version None)
Quarter: 2011Q3

REPORT INFORMATION
  Report Type: 
  Country: None (occurrence: None)
  Receive Date: 20110906
  Receipt Date: 20110721
  Transmission Date: 20111222
  Serious: Yes (Life-Threatening)
  Sender: FDA-Public Use
  Company Number: US-BAXTER-2011BH028307

PATIENT
  Age: 21 Year
  Sex: Male
  Weight: 89 kg

DRUGS (3)
  1. CELEBREX [Concomitant]
     Indication: PAIN
     Route: 048
     Dates: start: 20100909
  2. TYLENOL W/ CODEINE NO. 4 [Concomitant]
     Indication: PAIN
     Route: 048
     Dates: start: 20100730
  3. FEIBA [Suspect]
     Indication: HAEMOPHILIA
     Route: 042
     Dates: start: 20110601, end: 20110601

REACTIONS (1)
  - HEPATITIS B ANTIBODY POSITIVE [None]
